FAERS Safety Report 10256741 (Version 1)
Quarter: 2014Q2

REPORT INFORMATION
  Report Type: Report from Study
  Country: DE (occurrence: DE)
  Receive Date: 20140624
  Receipt Date: 20140624
  Transmission Date: 20141212
  Serious: Yes (Hospitalization)
  Sender: FDA-Public Use
  Company Number: DE-JNJFOC-20131117406

PATIENT
  Sex: Female
  Weight: 100 kg

DRUGS (19)
  1. XARELTO [Suspect]
     Indication: PRODUCT USED FOR UNKNOWN INDICATION
     Route: 048
     Dates: start: 20130726
  2. HCT [Concomitant]
     Route: 065
     Dates: start: 2000
  3. GABAPENTIN [Concomitant]
     Route: 065
     Dates: start: 2000
  4. PANTOPRAZOLE [Concomitant]
     Route: 065
     Dates: start: 2000
  5. OXYCODON [Concomitant]
     Route: 065
     Dates: start: 2000
  6. AMIODARON [Concomitant]
     Route: 065
     Dates: start: 20130809, end: 20130813
  7. AMIODARON [Concomitant]
     Route: 065
     Dates: start: 20130814
  8. ALENDRONIC ACID [Concomitant]
     Route: 065
     Dates: start: 2000
  9. AMITRIPTYLIN [Concomitant]
     Route: 065
     Dates: start: 201308
  10. AMLODIPINE [Concomitant]
     Route: 065
     Dates: start: 2000
  11. TORASEMID [Concomitant]
     Route: 065
     Dates: start: 20130806
  12. CLOPIDOGREL [Concomitant]
     Route: 065
     Dates: start: 20130807
  13. METOPROLOL [Concomitant]
     Route: 065
     Dates: start: 20130406
  14. ATORVASTATIN [Concomitant]
     Route: 065
     Dates: start: 20130807, end: 20130814
  15. ATORVASTATIN [Concomitant]
     Route: 065
     Dates: start: 20130815
  16. POTASSIUM BICARBONATE [Concomitant]
     Route: 065
     Dates: start: 20130816
  17. ACTRAPHANE [Concomitant]
     Route: 065
     Dates: start: 201308
  18. METFORMIN [Concomitant]
     Route: 065
     Dates: start: 2000, end: 201308
  19. SITAGLIPTIN [Concomitant]
     Route: 065
     Dates: start: 2000, end: 201308

REACTIONS (3)
  - Coronary artery disease [Not Recovered/Not Resolved]
  - Cardiac failure [Recovered/Resolved]
  - Atrial thrombosis [Unknown]
